FAERS Safety Report 7030764-2 (Version None)
Quarter: 2010Q4

REPORT INFORMATION
  Report Type: 
  Country: None (occurrence: None)
  Receive Date: 20101006
  Receipt Date: 20100921
  Transmission Date: 20110411
  Serious: No
  Sender: FDA-Public Use
  Company Number: US-PFIZER INC-2010099233

PATIENT
  Sex: Female
  Weight: 52.608 kg

DRUGS (7)
  1. DETROL [Suspect]
     Indication: HYPERTONIC BLADDER
     Dosage: UNK
     Dates: end: 20040101
  2. TOVIAZ [Suspect]
     Dosage: 4 MG, 1X/DAY
     Dates: start: 20100701
  3. DETROL LA [Suspect]
     Dosage: UNK
  4. METOPROLOL [Concomitant]
     Indication: HYPERTENSION
     Dosage: UNK
  5. SIMVASTATIN [Concomitant]
     Indication: BLOOD CHOLESTEROL INCREASED
     Dosage: UNK
  6. DILTIAZEM [Concomitant]
     Indication: ATRIAL FIBRILLATION
     Dosage: UNK
  7. WARFARIN [Concomitant]
     Dosage: UNK

REACTIONS (6)
  - CONSTIPATION [None]
  - DRUG EFFECT DECREASED [None]
  - DRUG INEFFECTIVE [None]
  - DRY MOUTH [None]
  - INCONTINENCE [None]
  - URINARY RETENTION [None]
